FAERS Safety Report 7930036-5 (Version None)
Quarter: 2011Q4

REPORT INFORMATION
  Report Type: 
  Country: None (occurrence: None)
  Receive Date: 20111121
  Receipt Date: 20111111
  Transmission Date: 20120403
  Serious: Yes (Other)
  Sender: FDA-Public Use
  Company Number: US-ASTELLAS-2011US006487

PATIENT
  Sex: Female

DRUGS (3)
  1. ERLOTINIB HYDROCHLORIDE [Suspect]
     Indication: NON-SMALL CELL LUNG CANCER STAGE IIIB
     Dosage: 150 MG, UID/QD
     Route: 048
     Dates: start: 20110610
  2. FASLODEX [Suspect]
     Indication: NON-SMALL CELL LUNG CANCER STAGE IIIB
     Dosage: Q 2WEEKS X 3 DOSES
     Route: 030
     Dates: start: 20110610
  3. FASLODEX [Suspect]
     Dosage: UNK Q 28 DAYS
     Route: 065

REACTIONS (9)
  - ABDOMINAL DISTENSION [None]
  - WEIGHT INCREASED [None]
  - HYPOGEUSIA [None]
  - ABDOMINAL PAIN UPPER [None]
  - HYPOSMIA [None]
  - SCAB [None]
  - RASH PUSTULAR [None]
  - MUCOUS MEMBRANE DISORDER [None]
  - MALIGNANT PLEURAL EFFUSION [None]
